FAERS Safety Report 25929216 (Version 2)
Quarter: 2025Q4

REPORT INFORMATION
  Report Type: Report from Study
  Country: US (occurrence: US)
  Receive Date: 20251016
  Receipt Date: 20251211
  Transmission Date: 20260118
  Serious: Yes (Other)
  Sender: NOVARTIS
  Company Number: US-002147023-NVSC2025US159695

PATIENT
  Age: 68 Year
  Sex: Female

DRUGS (1)
  1. LEQVIO [Suspect]
     Active Substance: INCLISIRAN SODIUM
     Indication: Product used for unknown indication
     Dosage: UNK
     Route: 058
     Dates: start: 20250908

REACTIONS (8)
  - Cataract [Unknown]
  - Deafness [Unknown]
  - Illness [Recovered/Resolved]
  - Pain [Recovered/Resolved]
  - Hypokinesia [Unknown]
  - Gait disturbance [Unknown]
  - Arthralgia [Unknown]
  - Alopecia [Unknown]

NARRATIVE: CASE EVENT DATE: 20250909
